FAERS Safety Report 24687280 (Version 1)
Quarter: 2024Q4

REPORT INFORMATION
  Report Type: Spontaneous
  Country: US (occurrence: None)
  Receive Date: 20241201
  Receipt Date: 20241201
  Transmission Date: 20250115
  Serious: Yes (Other)
  Sender: Public
  Company Number: None

PATIENT
  Age: 54 Year
  Sex: Female
  Weight: 42.3 kg

DRUGS (9)
  1. AMPHETAMINE\DEXTROAMPHETAMINE [Suspect]
     Active Substance: AMPHETAMINE\DEXTROAMPHETAMINE
     Indication: Attention deficit hyperactivity disorder
     Dosage: 1 TABLET ORAL ?
     Route: 048
     Dates: start: 20241024, end: 20241024
  2. AJOVY [Concomitant]
     Active Substance: FREMANEZUMAB-VFRM
  3. elatriptan [Concomitant]
  4. VIENVA TM [Concomitant]
     Active Substance: ETHINYL ESTRADIOL\LEVONORGESTREL
  5. VITAMIN B1 [Concomitant]
     Active Substance: THIAMINE HYDROCHLORIDE
  6. VITAMIN B12 [Concomitant]
     Active Substance: CYANOCOBALAMIN
  7. CALCIUM [Concomitant]
     Active Substance: CALCIUM
  8. vitamin D chew [Concomitant]
  9. BIOTIN [Concomitant]
     Active Substance: BIOTIN

REACTIONS (5)
  - Headache [None]
  - Myalgia [None]
  - Abdominal discomfort [None]
  - Brain fog [None]
  - Impaired work ability [None]

NARRATIVE: CASE EVENT DATE: 20241024
